FAERS Safety Report 6260885-3 (Version None)
Quarter: 2009Q3

REPORT INFORMATION
  Report Type: 
  Country: None (occurrence: None)
  Receive Date: 20090707
  Receipt Date: 20090624
  Transmission Date: 20100115
  Serious: Yes (Other)
  Sender: FDA-Public Use
  Company Number: ACO_00563_2009

PATIENT
  Age: 60 Year
  Sex: Female

DRUGS (2)
  1. TIZANIDINE HYDROCHLORIDE [Suspect]
     Indication: PARALYSIS
     Dosage: DF, ORAL
     Route: 048
     Dates: start: 19990101
  2. PHENOBAL /00023201/ (PHENOBAL - PHENOBARBITAL)  (NOT SPECIFIED) [Suspect]
     Indication: DRUG USE FOR UNKNOWN INDICATION
     Dosage: DF

REACTIONS (2)
  - SKIN ULCER [None]
  - VASCULITIS [None]
